FAERS Safety Report 5655828-7 (Version None)
Quarter: 2008Q1

REPORT INFORMATION
  Report Type: 
  Country: None (occurrence: None)
  Receive Date: 20080307
  Receipt Date: 20080229
  Transmission Date: 20080703
  Serious: Yes (Life-Threatening, Hospitalization, Disabling)
  Sender: FDA-Public Use
  Company Number: FI-ABBOTT-08P-055-0439610-00

PATIENT
  Age: 42 Year
  Sex: Male

DRUGS (3)
  1. HUMIRA [Suspect]
     Indication: PSORIATIC ARTHROPATHY
     Route: 058
     Dates: start: 20051101, end: 20071110
  2. HUMIRA [Suspect]
     Indication: ANKYLOSING SPONDYLITIS
  3. CYCLOSPORINE [Concomitant]
     Indication: PSORIASIS
     Route: 048
     Dates: start: 20070426, end: 20071110

REACTIONS (1)
  - ENCEPHALITIS HERPES [None]
